FAERS Safety Report 8062987-8 (Version None)
Quarter: 2011Q4

REPORT INFORMATION
  Report Type: 
  Country: None (occurrence: None)
  Receive Date: 20111221
  Receipt Date: 20110817
  Transmission Date: 20120403
  Serious: Yes (Other)
  Sender: FDA-Public Use
  Company Number: PHHY2011US52678

PATIENT
  Age: 62 Year
  Sex: Female
  Weight: 56.7 kg

DRUGS (2)
  1. EXJADE [Suspect]
     Indication: POST PROCEDURAL COMPLICATION
     Dosage: 1000 MG, QD, ORAL
     Route: 048
     Dates: start: 20090512
  2. EXJADE [Suspect]
     Indication: PROCEDURAL COMPLICATION
     Dosage: 1000 MG, QD, ORAL
     Route: 048
     Dates: start: 20090512

REACTIONS (2)
  - RENAL IMPAIRMENT [None]
  - BLOOD CREATININE INCREASED [None]
